FAERS Safety Report 19165583 (Version 5)
Quarter: 2022Q1

REPORT INFORMATION
  Report Type: Report from Study
  Country: JP (occurrence: JP)
  Receive Date: 20210421
  Receipt Date: 20220202
  Transmission Date: 20220423
  Serious: Yes (Hospitalization)
  Sender: FDA-Public Use
  Company Number: JP-ABBVIE-21P-087-3857599-00

PATIENT
  Age: 87 Year
  Sex: Female
  Weight: 54.5 kg

DRUGS (28)
  1. UPADACITINIB [Suspect]
     Active Substance: UPADACITINIB
     Indication: Rheumatoid arthritis
     Route: 048
     Dates: start: 20170831, end: 20180921
  2. UPADACITINIB [Suspect]
     Active Substance: UPADACITINIB
     Indication: Rheumatoid arthritis
     Route: 048
     Dates: start: 20180922, end: 20210411
  3. AMLODIPINE [Concomitant]
     Active Substance: AMLODIPINE BESYLATE
     Indication: Hypertension
     Route: 048
     Dates: start: 20060314
  4. RABEPRAZOLE SODIUM [Concomitant]
     Active Substance: RABEPRAZOLE SODIUM
     Indication: Gastritis prophylaxis
     Route: 048
     Dates: start: 20121031, end: 20180912
  5. RABEPRAZOLE SODIUM [Concomitant]
     Active Substance: RABEPRAZOLE SODIUM
     Route: 048
     Dates: start: 20181116, end: 20181214
  6. RABEPRAZOLE SODIUM [Concomitant]
     Active Substance: RABEPRAZOLE SODIUM
     Route: 048
     Dates: start: 20190112
  7. GLIMEPIRIDE [Concomitant]
     Active Substance: GLIMEPIRIDE
     Indication: Diabetes mellitus
     Route: 048
     Dates: start: 20121031, end: 20210412
  8. GLIMEPIRIDE [Concomitant]
     Active Substance: GLIMEPIRIDE
     Route: 048
     Dates: start: 20210413, end: 20210514
  9. GLIMEPIRIDE [Concomitant]
     Active Substance: GLIMEPIRIDE
     Route: 048
     Dates: start: 20210519, end: 20210816
  10. GLIMEPIRIDE [Concomitant]
     Active Substance: GLIMEPIRIDE
     Route: 048
     Dates: start: 20210817
  11. ANAGLIPTIN [Concomitant]
     Active Substance: ANAGLIPTIN
     Indication: Diabetes mellitus
     Route: 048
     Dates: start: 20160413, end: 20180919
  12. ANAGLIPTIN [Concomitant]
     Active Substance: ANAGLIPTIN
     Route: 048
     Dates: start: 20181116, end: 20181214
  13. ANAGLIPTIN [Concomitant]
     Active Substance: ANAGLIPTIN
     Route: 048
     Dates: start: 20190112, end: 20210412
  14. MAGNESIUM OXIDE [Concomitant]
     Active Substance: MAGNESIUM OXIDE
     Indication: Gastritis prophylaxis
     Route: 048
     Dates: start: 20170516, end: 20210412
  15. REBAMIPIDE [Concomitant]
     Active Substance: REBAMIPIDE
     Indication: Gastritis prophylaxis
     Route: 048
     Dates: start: 20170727
  16. ROSUVASTATIN [Concomitant]
     Active Substance: ROSUVASTATIN
     Indication: Hyperlipidaemia
     Route: 048
     Dates: start: 20180307, end: 20210524
  17. BENZETHONIUM CHLORIDE [Concomitant]
     Active Substance: BENZETHONIUM CHLORIDE
     Indication: Dental disorder prophylaxis
     Route: 049
     Dates: start: 20180412
  18. MINODRONIC ACID NYDNATE [Concomitant]
     Indication: Osteoporosis
     Route: 048
     Dates: start: 20180726, end: 20180821
  19. MINODRONIC ACID NYDNATE [Concomitant]
     Route: 048
     Dates: start: 20181206, end: 20210406
  20. ALFACALCIDOL [Concomitant]
     Active Substance: ALFACALCIDOL
     Indication: Osteoporosis
     Route: 048
     Dates: start: 20180727, end: 20180912
  21. ALFACALCIDOL [Concomitant]
     Active Substance: ALFACALCIDOL
     Route: 048
     Dates: start: 20181116, end: 20181214
  22. ALFACALCIDOL [Concomitant]
     Active Substance: ALFACALCIDOL
     Route: 048
     Dates: start: 20190112, end: 20210526
  23. DICLOFENAC SODIUM [Concomitant]
     Active Substance: DICLOFENAC SODIUM
     Indication: Rheumatoid arthritis
     Route: 061
     Dates: start: 20200311
  24. CELECOXIB [Concomitant]
     Active Substance: CELECOXIB
     Indication: Rheumatoid arthritis
     Route: 048
     Dates: start: 20200828, end: 20210607
  25. CELECOXIB [Concomitant]
     Active Substance: CELECOXIB
     Route: 048
     Dates: start: 20210608
  26. LOXOPROFEN NA TAPE [Concomitant]
     Indication: Back pain
     Route: 061
     Dates: start: 20201216
  27. ISCOTIN [Concomitant]
     Active Substance: ISONIAZID
     Indication: Antibiotic prophylaxis
     Route: 048
     Dates: start: 20170810
  28. KETOPROFEN TAPE [Concomitant]
     Indication: Back pain
     Route: 061
     Dates: start: 20210112

REACTIONS (1)
  - Infective spondylitis [Not Recovered/Not Resolved]

NARRATIVE: CASE EVENT DATE: 20210408
